FAERS Safety Report 8942750 (Version 2)
Quarter: 2014Q2

REPORT INFORMATION
  Report Type: Spontaneous
  Country: US (occurrence: US)
  Receive Date: 20121204
  Receipt Date: 20140528
  Transmission Date: 20141212
  Serious: Yes (Hospitalization, Disabling, Other)
  Sender: FDA-Public Use
  Company Number: US-BAYER-2012-125832

PATIENT
  Age: 37 Year
  Sex: Female

DRUGS (5)
  1. YAZ [Suspect]
  2. YASMIN [Suspect]
     Dosage: UNK
     Dates: start: 2006, end: 2011
  3. OCELLA [Suspect]
     Dosage: UNK
     Dates: start: 2006, end: 2011
  4. ZARAH [Suspect]
     Dosage: UNK
     Dates: start: 2006, end: 2011
  5. PRILOSEC [Concomitant]

REACTIONS (7)
  - Portal vein thrombosis [Recovered/Resolved]
  - Cholecystitis chronic [None]
  - Injury [None]
  - Pain [Recovered/Resolved]
  - Deformity [Recovered/Resolved]
  - Anxiety [None]
  - Anhedonia [None]
